FAERS Safety Report 9156738 (Version 1)
Quarter: 2013Q1

REPORT INFORMATION
  Report Type: Spontaneous
  Country: US (occurrence: US)
  Receive Date: 20130312
  Receipt Date: 20130312
  Transmission Date: 20140127
  Serious: Yes (Hospitalization)
  Sender: FDA-Public Use
  Company Number: US-ELI_LILLY_AND_COMPANY-US201303000142

PATIENT
  Sex: Female

DRUGS (3)
  1. CYMBALTA [Suspect]
     Indication: MAJOR DEPRESSION
     Dosage: 60 MG, BID
     Dates: start: 2011, end: 201301
  2. WELLBUTRIN [Concomitant]
     Dosage: UNK, UNKNOWN
  3. TRAZODONE [Concomitant]
     Dosage: UNK, UNKNOWN

REACTIONS (16)
  - Migraine [Unknown]
  - Feeling abnormal [Unknown]
  - Nightmare [Recovered/Resolved]
  - Mania [Unknown]
  - Agitation [Not Recovered/Not Resolved]
  - Nausea [Unknown]
  - Retching [Unknown]
  - Diarrhoea [Not Recovered/Not Resolved]
  - Malaise [Unknown]
  - Hypoaesthesia oral [Unknown]
  - Thinking abnormal [Not Recovered/Not Resolved]
  - Confusional state [Unknown]
  - Dysarthria [Unknown]
  - Off label use [Unknown]
  - Drug withdrawal syndrome [Not Recovered/Not Resolved]
  - Drug ineffective [Unknown]
